FAERS Safety Report 6015611-X (Version None)
Quarter: 2008Q4

REPORT INFORMATION
  Report Type: 
  Country: None (occurrence: None)
  Receive Date: 20081222
  Receipt Date: 20081212
  Transmission Date: 20090506
  Serious: Yes (Hospitalization)
  Sender: FDA-Public Use
  Company Number: US-ABBOTT-08P-163-0492862-00

PATIENT
  Sex: Male
  Weight: 68.1 kg

DRUGS (4)
  1. HUMIRA [Suspect]
     Indication: CROHN'S DISEASE
     Route: 058
     Dates: start: 20080701, end: 20081101
  2. HUMIRA [Suspect]
     Dates: start: 20081201
  3. DESIPRAMINE HCL [Concomitant]
     Indication: ABDOMINAL RIGIDITY
     Dosage: UNSURE OF STRENGTH
  4. BENTYL [Concomitant]
     Indication: ABDOMINAL RIGIDITY
     Route: 048

REACTIONS (7)
  - CHROMATURIA [None]
  - EAR INFECTION [None]
  - FISTULA [None]
  - FLANK PAIN [None]
  - LUNG INFECTION [None]
  - NEPHROLITHIASIS [None]
  - PYREXIA [None]
